FAERS Safety Report 25163108 (Version 2)
Quarter: 2025Q3

REPORT INFORMATION
  Report Type: Spontaneous
  Country: US (occurrence: US)
  Receive Date: 20250404
  Receipt Date: 20250810
  Transmission Date: 20251021
  Serious: No
  Sender: ALEXION PHARMACEUTICALS
  Company Number: US-AstraZeneca-CH-00839930A

PATIENT
  Sex: Male

DRUGS (2)
  1. FARXIGA [Suspect]
     Active Substance: DAPAGLIFLOZIN PROPANEDIOL
     Route: 065
  2. LOKELMA [Concomitant]
     Active Substance: SODIUM ZIRCONIUM CYCLOSILICATE
     Route: 065

REACTIONS (9)
  - Blood glucose decreased [Unknown]
  - Fatigue [Unknown]
  - Anxiety [Unknown]
  - Claustrophobia [Unknown]
  - Confusional state [Unknown]
  - Decreased appetite [Unknown]
  - Pollakiuria [Unknown]
  - Blood potassium increased [Unknown]
  - Joint swelling [Unknown]
